FAERS Safety Report 9702698 (Version 1)
Quarter: 2013Q4

REPORT INFORMATION
  Report Type: Spontaneous
  Country: IT (occurrence: None)
  Receive Date: 20131120
  Receipt Date: 20131120
  Transmission Date: 20140711
  Serious: Yes (Hospitalization)
  Sender: FDA-Public Use
  Company Number: 2013-003539

PATIENT
  Age: 63 Year
  Sex: Female

DRUGS (1)
  1. OPTINATE [Suspect]
     Indication: OSTEOPOROSIS
     Dosage: REGIMEN #2 35 MG WEEKLY, ORAL 12/01/2000 TO 12/01/2006
     Route: 048
     Dates: start: 20070101, end: 20130101

REACTIONS (1)
  - Alveolar osteitis [None]
